FAERS Safety Report 16368417 (Version 1)
Quarter: 2019Q2

REPORT INFORMATION
  Report Type: Spontaneous
  Country: AT (occurrence: AT)
  Receive Date: 20190529
  Receipt Date: 20190529
  Transmission Date: 20190711
  Serious: Yes (Other)
  Sender: FDA-Public Use
  Company Number: AT-TEVA-2019-AT-1056167

PATIENT
  Age: 57 Year
  Sex: Female

DRUGS (1)
  1. DICLOBENE 50 MG - FILMTABLETTEN [Suspect]
     Active Substance: DICLOFENAC SODIUM
     Indication: PAIN
     Route: 048
     Dates: start: 20181206, end: 20190205

REACTIONS (5)
  - Dyspnoea [Unknown]
  - Conjunctivitis [Unknown]
  - Swelling of eyelid [Unknown]
  - Type I hypersensitivity [Unknown]
  - Diarrhoea [Unknown]

NARRATIVE: CASE EVENT DATE: 20190204
